FAERS Safety Report 8179177-0 (Version None)
Quarter: 2012Q1

REPORT INFORMATION
  Report Type: 
  Country: None (occurrence: None)
  Receive Date: 20120302
  Receipt Date: 20120228
  Transmission Date: 20120608
  Serious: Yes (Hospitalization)
  Sender: FDA-Public Use
  Company Number: US-PFIZER INC-2012041450

PATIENT
  Sex: Male
  Weight: 104 kg

DRUGS (3)
  1. NEURONTIN [Suspect]
     Indication: QUADRIPLEGIA
     Dosage: 1000 MG, 5X/DAY
  2. BACLOFEN [Concomitant]
     Indication: MUSCLE SPASMS
     Dosage: UNK
  3. AMBIEN [Concomitant]
     Indication: SLEEP DISORDER
     Dosage: UNK

REACTIONS (1)
  - NEPHROLITHIASIS [None]
